FAERS Safety Report 7056132-5 (Version None)
Quarter: 2010Q4

REPORT INFORMATION
  Report Type: 
  Country: None (occurrence: None)
  Receive Date: 20101021
  Receipt Date: 20101014
  Transmission Date: 20110411
  Serious: Yes (Other)
  Sender: FDA-Public Use
  Company Number: US-JNJFOC-20101005637

PATIENT
  Age: 52 Year
  Sex: Female

DRUGS (4)
  1. PEPCID AC [Suspect]
     Route: 048
  2. PEPCID AC [Suspect]
     Indication: GASTROOESOPHAGEAL REFLUX DISEASE
     Route: 048
  3. ALPHAGAN [Concomitant]
     Indication: GLAUCOMA
  4. PRIMATENE MIST [Concomitant]
     Indication: ASTHMA

REACTIONS (2)
  - DYSURIA [None]
  - URETHRAL DISORDER [None]
